FAERS Safety Report 8836556 (Version 1)
Quarter: 2012Q4

REPORT INFORMATION
  Report Type: Spontaneous
  Country: US (occurrence: None)
  Receive Date: 20121009
  Receipt Date: 20121009
  Transmission Date: 20130627
  Serious: Yes (Hospitalization)
  Sender: FDA-Public Use
  Company Number: DSU-2012-07855

PATIENT
  Age: 75 Year
  Sex: Female
  Weight: 58.06 kg

DRUGS (4)
  1. BENICAR HCT [Suspect]
     Indication: HYPERTENSION
     Dosage: 40/12.5 mg (QD), Per oral
  2. PRAVACHOL (PRAVASTATIN SODIUM) (PRAVASTATIN SODIUM) [Concomitant]
  3. DIAZEPAM (DIAZEPAM) (DIAZEPAM) [Concomitant]
  4. BENADRYL (DIPHENHYDRAMINE HYDROCHLORIDE) (DIPHENHYDRAMINE HYDROCHLORIDE) [Concomitant]

REACTIONS (1)
  - Breast cancer [None]
